FAERS Safety Report 9094182 (Version 1)
Quarter: 2013Q1

REPORT INFORMATION
  Report Type: Spontaneous
  Country: US (occurrence: None)
  Receive Date: 20130122
  Receipt Date: 20130122
  Transmission Date: 20140127
  Serious: Yes (Hospitalization)
  Sender: FDA-Public Use
  Company Number: 2012-701

PATIENT
  Age: 75 Year
  Sex: Female

DRUGS (2)
  1. PRIALT (ZICONOTIDE) INTRATHECAL INFUSION [Suspect]
     Indication: PAIN
     Dosage: ,ONCE/HOUR
     Route: 037
  2. PRIALT (ZICONOTIDE) INTRATHECAL INFUSION [Suspect]
     Indication: POST LAMINECTOMY SYNDROME
     Dosage: ,ONCE/HOUR
     Route: 037

REACTIONS (2)
  - Intestinal ulcer [None]
  - Pain [None]
